FAERS Safety Report 19844590 (Version 4)
Quarter: 2022Q1

REPORT INFORMATION
  Report Type: Report from Study
  Country: CA (occurrence: CA)
  Receive Date: 20210916
  Receipt Date: 20220124
  Transmission Date: 20220423
  Serious: Yes (Other)
  Sender: FDA-Public Use
  Company Number: CA-HLS-202108403

PATIENT
  Sex: Male

DRUGS (2)
  1. CLOZARIL [Suspect]
     Active Substance: CLOZAPINE
     Indication: Product used for unknown indication
     Route: 048
     Dates: start: 20150203, end: 20210930
  2. CLOZARIL [Suspect]
     Active Substance: CLOZAPINE
     Indication: Product used for unknown indication
     Dosage: 300 MG TWICE DAILY FOR SEVERAL YEARS
     Route: 048
     Dates: start: 20150203, end: 20210905

REACTIONS (3)
  - Lung disorder [Unknown]
  - Pyrexia [Unknown]
  - Neuroleptic malignant syndrome [Unknown]
